FAERS Safety Report 11632854 (Version 2)
Quarter: 2018Q4

REPORT INFORMATION
  Report Type: Spontaneous
  Country: IT (occurrence: IT)
  Receive Date: 20151015
  Receipt Date: 20181001
  Transmission Date: 20190204
  Serious: Yes (Other)
  Sender: FDA-Public Use
  Company Number: PHHY2015IT124032

PATIENT
  Age: 52 Year
  Sex: Male
  Weight: 57 kg

DRUGS (5)
  1. ABACAVIR. [Concomitant]
     Active Substance: ABACAVIR
     Indication: ANTIRETROVIRAL THERAPY
     Route: 065
  2. RILPIVIRINE [Interacting]
     Active Substance: RILPIVIRINE
     Indication: ANTIRETROVIRAL THERAPY
     Dosage: 25 MG, UNK
     Route: 065
  3. LAMIVUDINE. [Concomitant]
     Active Substance: LAMIVUDINE
     Indication: ANTIRETROVIRAL THERAPY
     Route: 065
  4. PANTOPRAZOLE [Suspect]
     Active Substance: PANTOPRAZOLE
     Indication: PRODUCT USED FOR UNKNOWN INDICATION
     Dosage: 40 MG, QD
     Route: 065
  5. RILPIVIRINE [Interacting]
     Active Substance: RILPIVIRINE
     Indication: INFECTION

REACTIONS (3)
  - Drug level decreased [Recovering/Resolving]
  - Drug level below therapeutic [Recovering/Resolving]
  - Drug interaction [Recovering/Resolving]
